FAERS Safety Report 18355312 (Version 1)
Quarter: 2020Q4

REPORT INFORMATION
  Report Type: Spontaneous
  Country: US (occurrence: US)
  Receive Date: 20201007
  Receipt Date: 20201007
  Transmission Date: 20210114
  Serious: Yes (Hospitalization)
  Sender: FDA-Public Use
  Company Number: US-VERTEX PHARMACEUTICALS-2020-019684

PATIENT
  Age: 25 Year
  Sex: Female

DRUGS (4)
  1. ULTRACEF [CEFADROXIL] [Concomitant]
     Dosage: 1 GRAM
  2. TRIKAFTA [Suspect]
     Active Substance: ELEXACAFTOR\IVACAFTOR\TEZACAFTOR
     Indication: CYSTIC FIBROSIS
     Dosage: 2 TABS (ELEXA100MG/TEZA50MG/IVA75MG) IN THE AM AND 1 TAB(IVA 150MG) IN THE PM
     Route: 048
  3. ALBUTEROL [SALBUTAMOL] [Concomitant]
     Active Substance: ALBUTEROL
     Dosage: 90 MICROGRAM
  4. PULMOZYME [Concomitant]
     Active Substance: DORNASE ALFA

REACTIONS (1)
  - Asthma [Unknown]

NARRATIVE: CASE EVENT DATE: 202008
